FAERS Safety Report 15649410 (Version 6)
Quarter: 2021Q3

REPORT INFORMATION
  Report Type: Report from Study
  Country: US (occurrence: US)
  Receive Date: 20181122
  Receipt Date: 20210730
  Transmission Date: 20211014
  Serious: No
  Sender: FDA-Public Use
  Company Number: US-ACADIA PHARMACEUTICALS INC.-ACA-2018-010561

PATIENT
  Sex: Male

DRUGS (15)
  1. NUPLAZID [Suspect]
     Active Substance: PIMAVANSERIN TARTRATE
     Indication: PARKINSON^S DISEASE
     Dosage: 34 MILLIGRAM, QD
     Route: 048
  2. MAGNESIUM [Concomitant]
     Active Substance: MAGNESIUM
  3. CALCIUM [Concomitant]
     Active Substance: CALCIUM
  4. XADAGO [Concomitant]
     Active Substance: SAFINAMIDE MESYLATE
  5. RYTARY [Concomitant]
     Active Substance: CARBIDOPA\LEVODOPA
  6. ATORVASTATIN [Concomitant]
     Active Substance: ATORVASTATIN
  7. VITAMIN B COMPLEX [Concomitant]
     Active Substance: CYANOCOBALAMIN\DEXPANTHENOL\NIACINAMIDE\PYRIDOXINE HYDROCHLORIDE\RIBOFLAVIN 5^-PHOSPHATE SODIUM\THIAMINE HYDROCHLORIDE\VITAMIN B COMPLEX
  8. DUOPA [Concomitant]
     Active Substance: CARBIDOPA\LEVODOPA
  9. MYRBETRIQ [Concomitant]
     Active Substance: MIRABEGRON
  10. NUPLAZID [Suspect]
     Active Substance: PIMAVANSERIN TARTRATE
     Dosage: 34 MILLIGRAM, QD
     Route: 048
  11. NUPLAZID [Suspect]
     Active Substance: PIMAVANSERIN TARTRATE
     Dosage: 17 MG, QD
     Route: 048
     Dates: start: 201810
  12. FLOMAX [Concomitant]
     Active Substance: TAMSULOSIN HYDROCHLORIDE
  13. MEN^S 50 PLUS DAILY FORMULA [Concomitant]
  14. SINEMET [Concomitant]
     Active Substance: CARBIDOPA\LEVODOPA
  15. NUPLAZID [Suspect]
     Active Substance: PIMAVANSERIN TARTRATE
     Indication: PARKINSON^S DISEASE
     Dosage: 34 MG, QD
     Route: 048
     Dates: start: 201804, end: 2018

REACTIONS (5)
  - Hypersensitivity [Unknown]
  - Product dose omission issue [Unknown]
  - Nightmare [Unknown]
  - Delusion [Unknown]
  - Underdose [Unknown]

NARRATIVE: CASE EVENT DATE: 2018
